FAERS Safety Report 8157107-5 (Version None)
Quarter: 2012Q1

REPORT INFORMATION
  Report Type: 
  Country: None (occurrence: None)
  Receive Date: 20120222
  Receipt Date: 20120210
  Transmission Date: 20120608
  Serious: Yes (Hospitalization)
  Sender: FDA-Public Use
  Company Number: CA-VERTEX PHARMACEUTICALS INC.-AE-2011-005390

PATIENT
  Sex: Male

DRUGS (3)
  1. INCIVEK [Suspect]
     Indication: HEPATITIS C
     Route: 048
     Dates: start: 20111111, end: 20111220
  2. RIBAVIRIN [Concomitant]
     Indication: HEPATITIS C
     Dates: start: 20111111
  3. PEGASYS [Concomitant]
     Indication: HEPATITIS C
     Dates: start: 20111111

REACTIONS (3)
  - ECZEMA [None]
  - OFF LABEL USE [None]
  - CHILLS [None]
